FAERS Safety Report 18802616 (Version 2)
Quarter: 2021Q1

REPORT INFORMATION
  Report Type: Spontaneous
  Country: US (occurrence: US)
  Receive Date: 20210128
  Receipt Date: 20210209
  Transmission Date: 20210419
  Serious: Yes (Other)
  Sender: FDA-Public Use
  Company Number: US-VERO BIOTECH-2105995

PATIENT
  Age: 24 Month
  Sex: Male

DRUGS (2)
  1. GENOSYL [Suspect]
     Active Substance: NITRIC OXIDE
     Indication: PULMONARY HYPERTENSION
     Route: 055
  2. GENOSYL [Suspect]
     Active Substance: NITRIC OXIDE

REACTIONS (2)
  - Device delivery system issue [Unknown]
  - Cardiac monitoring abnormal [Unknown]
